FAERS Safety Report 4917680-4 (Version None)
Quarter: 2006Q1

REPORT INFORMATION
  Report Type: 
  Country: None (occurrence: None)
  Receive Date: 20060221
  Receipt Date: 20060209
  Transmission Date: 20060701
  Serious: Yes (Hospitalization)
  Sender: FDA-Public Use
  Company Number: FR-ROCHE-435967

PATIENT
  Age: 89 Year
  Sex: Male

DRUGS (3)
  1. ROCEPHIN [Suspect]
     Dosage: FORM REPORTED AS INJECTABLE SOLUTION.
     Route: 042
     Dates: start: 20051221, end: 20060104
  2. SINEMET [Suspect]
     Indication: PARKINSON'S DISEASE
     Dosage: STRENGTH REPORTED AS 100 MG / 10 MG.
     Route: 048
     Dates: start: 20051206
  3. ROVAMYCINE [Suspect]
     Indication: DRUG USE FOR UNKNOWN INDICATION
     Route: 042
     Dates: start: 20051220, end: 20060103

REACTIONS (6)
  - DRUG ERUPTION [None]
  - ERYTHEMA [None]
  - HYPOTHERMIA [None]
  - LUNG DISORDER [None]
  - PRURITUS [None]
  - PURPURA [None]
